FAERS Safety Report 5663032-1 (Version None)
Quarter: 2008Q1

REPORT INFORMATION
  Report Type: 
  Country: None (occurrence: None)
  Receive Date: 20080313
  Receipt Date: 20080301
  Transmission Date: 20080703
  Serious: Yes (Other)
  Sender: FDA-Public Use
  Company Number: US-PFIZER INC-2008020153

PATIENT
  Sex: Female
  Weight: 73 kg

DRUGS (9)
  1. CHANTIX [Suspect]
     Indication: SMOKING CESSATION THERAPY
  2. PREVACID [Concomitant]
  3. EFFEXOR [Concomitant]
  4. XANAX [Concomitant]
  5. LUNESTA [Concomitant]
  6. THORAZINE [Concomitant]
  7. OMEPRAZOLE [Concomitant]
  8. PALIPERIDONE [Concomitant]
  9. PRILOSEC [Concomitant]

REACTIONS (6)
  - ABDOMINAL PAIN UPPER [None]
  - FLATULENCE [None]
  - GINGIVAL DISORDER [None]
  - HEADACHE [None]
  - MALAISE [None]
  - NAUSEA [None]
